FAERS Safety Report 15490625 (Version 1)
Quarter: 2018Q4

REPORT INFORMATION
  Report Type: Spontaneous
  Country: US (occurrence: US)
  Receive Date: 20181011
  Receipt Date: 20181011
  Transmission Date: 20190205
  Serious: Yes (Life-Threatening, Other)
  Sender: FDA-Public Use
  Company Number: PHEH2018US042809

PATIENT
  Sex: Female

DRUGS (1)
  1. CIPRODEX [Suspect]
     Active Substance: CIPROFLOXACIN HYDROCHLORIDE\DEXAMETHASONE
     Indication: PRODUCT USED FOR UNKNOWN INDICATION
     Route: 001
     Dates: start: 20181004

REACTIONS (8)
  - Chills [Unknown]
  - Product administration error [Unknown]
  - Feeling cold [Unknown]
  - Hot flush [Unknown]
  - Influenza [Unknown]
  - Feeling abnormal [Unknown]
  - Tension headache [Unknown]
  - Hyperhidrosis [Unknown]
